FAERS Safety Report 25412185 (Version 1)
Quarter: 2025Q2

REPORT INFORMATION
  Report Type: Spontaneous
  Country: BR (occurrence: BR)
  Receive Date: 20250609
  Receipt Date: 20250609
  Transmission Date: 20250716
  Serious: Yes (Other)
  Sender: MANKIND PHARMA
  Company Number: BR-MankindUS-000407

PATIENT
  Age: 48 Day
  Sex: Female

DRUGS (4)
  1. LIDOCAINE HYDROCHLORIDE [Suspect]
     Active Substance: LIDOCAINE HYDROCHLORIDE
     Indication: Local anaesthesia
  2. PHENYLEPHRINE HYDROCHLORIDE [Suspect]
     Active Substance: PHENYLEPHRINE HYDROCHLORIDE
     Indication: Local anaesthesia
     Route: 061
  3. TETRACAINE [Suspect]
     Active Substance: TETRACAINE
     Indication: Local anaesthesia
  4. EPINEPHRINE [Concomitant]
     Active Substance: EPINEPHRINE
     Indication: Local anaesthesia

REACTIONS (1)
  - Angioedema [Unknown]
